FAERS Safety Report 12676334 (Version 2)
Quarter: 2017Q1

REPORT INFORMATION
  Report Type: Spontaneous
  Country: US (occurrence: US)
  Receive Date: 20160823
  Receipt Date: 20170220
  Transmission Date: 20170428
  Serious: No
  Sender: FDA-Public Use
  Company Number: US-PFIZER INC-2016394687

PATIENT
  Age: 37 Year
  Sex: Female

DRUGS (2)
  1. IBRANCE [Suspect]
     Active Substance: PALBOCICLIB
     Dosage: 125 MG, CYCLIC (1CAP Q DAY X21 DAYS, 7 DAYS OFF)
     Dates: start: 20160804
  2. LETROZOLE. [Suspect]
     Active Substance: LETROZOLE
     Dosage: UNK

REACTIONS (5)
  - Arthralgia [Unknown]
  - Burning sensation [Unknown]
  - Pain in extremity [Unknown]
  - Neoplasm progression [Unknown]
  - Back pain [Unknown]
